FAERS Safety Report 10578589 (Version 1)
Quarter: 2014Q4

REPORT INFORMATION
  Report Type: Spontaneous
  Country: FR (occurrence: FR)
  Receive Date: 20141112
  Receipt Date: 20141112
  Transmission Date: 20150529
  Serious: Yes (Hospitalization, Other)
  Sender: FDA-Public Use
  Company Number: FR-ELI_LILLY_AND_COMPANY-FR201410011668

PATIENT
  Age: 65 Year
  Sex: Male

DRUGS (10)
  1. ALPRAZOLAM. [Concomitant]
     Active Substance: ALPRAZOLAM
     Dosage: UNK, UNKNOWN
     Route: 065
  2. LERCAN [Concomitant]
     Active Substance: LERCANIDIPINE
     Dosage: UNK, UNKNOWN
     Route: 065
  3. HYPERIUM [Concomitant]
     Active Substance: RILMENIDINE PHOSPHATE
     Dosage: UNK, UNKNOWN
     Route: 065
  4. FOLIC ACID. [Concomitant]
     Active Substance: FOLIC ACID
     Dosage: UNK, UNKNOWN
     Route: 065
  5. PAROXETINE HYDROCHLORIDE. [Concomitant]
     Active Substance: PAROXETINE HYDROCHLORIDE
     Dosage: UNK, UNKNOWN
     Route: 065
  6. LASILIX [Concomitant]
     Active Substance: FUROSEMIDE
     Dosage: UNK, UNKNOWN
     Route: 065
  7. ALIMTA [Suspect]
     Active Substance: PEMETREXED DISODIUM
     Indication: PLEURAL MESOTHELIOMA
     Dosage: UNK, CYCLICAL
     Route: 042
  8. DIFFU K [Concomitant]
     Active Substance: POTASSIUM CHLORIDE
     Dosage: UNK, UNKNOWN
     Route: 065
  9. CARBOPLATINE [Suspect]
     Active Substance: CARBOPLATIN
     Indication: PLEURAL MESOTHELIOMA
     Dosage: UNK, UNKNOWN
     Route: 065
  10. VITAMIN B12 [Concomitant]
     Active Substance: CYANOCOBALAMIN
     Dosage: UNK, UNKNOWN
     Route: 065

REACTIONS (6)
  - Malignant neoplasm progression [Unknown]
  - Gastrointestinal disorder [Unknown]
  - Off label use [Unknown]
  - Pancytopenia [Unknown]
  - Drug eruption [Recovered/Resolved]
  - General physical health deterioration [Unknown]

NARRATIVE: CASE EVENT DATE: 201408
